FAERS Safety Report 5273658-5 (Version None)
Quarter: 2007Q1

REPORT INFORMATION
  Report Type: 
  Country: None (occurrence: None)
  Receive Date: 20070321
  Receipt Date: 20070321
  Transmission Date: 20070707
  Serious: Yes (Life-Threatening, Other)
  Sender: FDA-Public Use
  Company Number: None

PATIENT
  Age: 45 Year
  Sex: Male
  Weight: 75 kg

DRUGS (16)
  1. DAUNORUBICIN 20 MG PER VIAL 5MG/ML UNKNOWN [Suspect]
     Indication: ACUTE MYELOID LEUKAEMIA
     Dosage: 90 MG/M2 DAILY IV
     Route: 042
     Dates: start: 20070222, end: 20070224
  2. ACYCLOVIR [Concomitant]
  3. ALLOPURINOL [Concomitant]
  4. CEFTAZIDIME [Concomitant]
  5. CYTARABINE [Concomitant]
  6. DAUNORUBICIN HCL [Concomitant]
  7. FLUCONAZOLE [Concomitant]
  8. LEVOFLOXACIN [Concomitant]
  9. METRONIDAZOLE [Concomitant]
  10. MULTI-VITAMIN [Concomitant]
  11. ONDANSETRON [Concomitant]
  12. PENICILLIN [Concomitant]
  13. PHYTONADIONE [Concomitant]
  14. PIPERACILLIN AND TAZOBACTAM [Concomitant]
  15. PROCHLORPERAZINE [Concomitant]
  16. VANCOMYCIN [Concomitant]

REACTIONS (4)
  - PROCEDURAL COMPLICATION [None]
  - PROCEDURAL HYPERTENSION [None]
  - SINUS BRADYCARDIA [None]
  - TORSADE DE POINTES [None]
